FAERS Safety Report 14816756 (Version 1)
Quarter: 2018Q2

REPORT INFORMATION
  Report Type: Spontaneous
  Country: EE (occurrence: EE)
  Receive Date: 20180426
  Receipt Date: 20180426
  Transmission Date: 20180711
  Serious: Yes (Hospitalization)
  Sender: FDA-Public Use
  Company Number: EE-JNJFOC-20180431175

PATIENT
  Age: 82 Year
  Sex: Female
  Weight: 93 kg

DRUGS (11)
  1. INDAPAMID [Concomitant]
     Active Substance: INDAPAMIDE
     Route: 065
  2. PARACETAMOL [Concomitant]
     Active Substance: ACETAMINOPHEN
     Route: 065
  3. XARELTO [Suspect]
     Active Substance: RIVAROXABAN
     Indication: DEEP VEIN THROMBOSIS
     Route: 048
  4. TRAMADOL. [Concomitant]
     Active Substance: TRAMADOL
     Route: 065
  5. METFORMIN [Concomitant]
     Active Substance: METFORMIN HYDROCHLORIDE
     Route: 065
  6. FUROSEMIDE. [Concomitant]
     Active Substance: FUROSEMIDE
     Route: 065
  7. ASPIRIN. [Concomitant]
     Active Substance: ASPIRIN
     Route: 065
  8. AMLODIPINE [Concomitant]
     Active Substance: AMLODIPINE BESYLATE
     Route: 065
  9. PERINDOPRIL [Concomitant]
     Active Substance: PERINDOPRIL
     Route: 065
  10. HUMA-METOPROL [Concomitant]
     Route: 065
  11. CODEIN [Concomitant]
     Active Substance: CODEINE
     Route: 065

REACTIONS (3)
  - Urosepsis [Recovering/Resolving]
  - Gastrointestinal haemorrhage [Recovering/Resolving]
  - Acute kidney injury [Recovered/Resolved with Sequelae]
